FAERS Safety Report 12572750 (Version 2)
Quarter: 2016Q3

REPORT INFORMATION
  Report Type: Report from Study
  Country: US (occurrence: US)
  Receive Date: 20160720
  Receipt Date: 20160926
  Transmission Date: 20161109
  Serious: Yes (Hospitalization, Other)
  Sender: FDA-Public Use
  Company Number: US-AMGEN-USASL2016091891

PATIENT
  Age: 36 Year
  Sex: Female

DRUGS (3)
  1. ENBREL [Suspect]
     Active Substance: ETANERCEPT
     Indication: PSORIATIC ARTHROPATHY
     Dosage: 50 MG, QWK
     Route: 065
     Dates: start: 201601, end: 2016
  2. ENBREL [Suspect]
     Active Substance: ETANERCEPT
     Dosage: UNK
     Route: 065
  3. METHOTREXATE. [Suspect]
     Active Substance: METHOTREXATE
     Indication: PRODUCT USED FOR UNKNOWN INDICATION
     Dosage: UNK
     Route: 065

REACTIONS (9)
  - Decreased immune responsiveness [Unknown]
  - Neck pain [Unknown]
  - Amnesia [Unknown]
  - Meningitis viral [Recovered/Resolved]
  - Immunodeficiency [Unknown]
  - Headache [Unknown]
  - Hypoaesthesia oral [Unknown]
  - Hypoaesthesia eye [Unknown]
  - Tracheostomy [Unknown]

NARRATIVE: CASE EVENT DATE: 2016
